FAERS Safety Report 10015915 (Version 6)
Quarter: 2021Q1

REPORT INFORMATION
  Report Type: Spontaneous
  Country: US (occurrence: US)
  Receive Date: 20140317
  Receipt Date: 20210203
  Transmission Date: 20210419
  Serious: Yes (Hospitalization, Other)
  Sender: FDA-Public Use
  Company Number: US-009507513-1403USA004509

PATIENT
  Sex: Female
  Weight: 56.69 kg

DRUGS (11)
  1. CENTRUM (MINERALS (UNSPECIFIED) (+) VITAMINS (UNSPECIFIED)) [Concomitant]
     Active Substance: MINERALS\VITAMINS
     Indication: ROUTINE HEALTH MAINTENANCE
     Dosage: 1 DF, QD
     Route: 048
     Dates: start: 1994
  2. CHOLECALCIFEROL [Concomitant]
     Active Substance: CHOLECALCIFEROL
     Dosage: 1 DOSAGE FORM, BID
     Dates: start: 20141211
  3. CALCIUM (UNSPECIFIED) [Concomitant]
     Active Substance: CALCIUM
     Indication: ROUTINE HEALTH MAINTENANCE
     Dosage: 600 MG (1500MG), BID
     Route: 048
     Dates: start: 1994
  4. FOSAMAX [Suspect]
     Active Substance: ALENDRONATE SODIUM
     Dosage: 70 MG, QW
     Route: 048
     Dates: start: 200110, end: 2010
  5. FOSAMAX [Suspect]
     Active Substance: ALENDRONATE SODIUM
     Dosage: 10 MG, QD
     Route: 048
  6. FOSAMAX [Suspect]
     Active Substance: ALENDRONATE SODIUM
     Indication: OSTEOPOROSIS
     Dosage: 70 MILLIGRAM, QW
     Route: 048
     Dates: start: 200803, end: 2018
  7. ALENDRONATE SODIUM. [Suspect]
     Active Substance: ALENDRONATE SODIUM
     Dosage: 70 MG, QW
     Route: 048
  8. OSTEO?BI?FLEX (OLD FORMULA) [Concomitant]
     Indication: ROUTINE HEALTH MAINTENANCE
     Dosage: 120 MG, QD
     Route: 048
     Dates: start: 1994
  9. CLINDAMYCIN. [Concomitant]
     Active Substance: CLINDAMYCIN
     Dosage: UNK
  10. FOSAMAX [Suspect]
     Active Substance: ALENDRONATE SODIUM
     Indication: OSTEOPOROSIS
     Dosage: 5 MG, QD
     Route: 048
     Dates: start: 20001211
  11. OMEGA?3 MARINE TRIGLYCERIDES [Concomitant]
     Active Substance: OMEGA-3-ACID ETHYL ESTERS
     Indication: ROUTINE HEALTH MAINTENANCE
     Dosage: 1000 MG, QD
     Route: 048
     Dates: start: 1994

REACTIONS (23)
  - Syncope [Recovered/Resolved]
  - Femur fracture [Unknown]
  - Cataract [Unknown]
  - Wrist fracture [Unknown]
  - Hypermetropia [Unknown]
  - Productive cough [Unknown]
  - Arrhythmia [Unknown]
  - Intraocular lens implant [Unknown]
  - Hip fracture [Unknown]
  - Supraventricular tachyarrhythmia [Unknown]
  - Dental prosthesis placement [Unknown]
  - Blepharochalasis [Unknown]
  - Osteoporosis [Unknown]
  - Irritability [Unknown]
  - Osteoarthritis [Unknown]
  - Presbyopia [Unknown]
  - Back pain [Unknown]
  - Dry age-related macular degeneration [Unknown]
  - Dizziness [Unknown]
  - Femur fracture [Unknown]
  - Product dose omission issue [Unknown]
  - Tooth extraction [Unknown]
  - Arthritis [Unknown]

NARRATIVE: CASE EVENT DATE: 20070710
